FAERS Safety Report 19907940 (Version 3)
Quarter: 2021Q4

REPORT INFORMATION
  Report Type: Report from Study
  Country: US (occurrence: US)
  Receive Date: 20211001
  Receipt Date: 20211110
  Transmission Date: 20220303
  Serious: Yes (Hospitalization, Other)
  Sender: FDA-Public Use
  Company Number: US-BAYER-2021-200397

PATIENT
  Age: 42 Year
  Sex: Male

DRUGS (2)
  1. STIVARGA [Suspect]
     Active Substance: REGORAFENIB
     Indication: Colorectal cancer
     Dosage: DAILY DOSE 160 MG FOR 3 WEEKS ON AND 1 WEEK OFF
     Route: 048
     Dates: start: 20210823, end: 2021
  2. STIVARGA [Suspect]
     Active Substance: REGORAFENIB
     Indication: Colorectal cancer
     Dosage: DAILY DOSE 80 MG
     Route: 048
     Dates: start: 20210927

REACTIONS (12)
  - Cough [Not Recovered/Not Resolved]
  - Rhinorrhoea [Recovering/Resolving]
  - Infection [Recovered/Resolved]
  - Tumour marker increased [Not Recovered/Not Resolved]
  - Muscular weakness [Not Recovered/Not Resolved]
  - Feeling hot [Recovering/Resolving]
  - Loss of personal independence in daily activities [Not Recovered/Not Resolved]
  - Dysphonia [Not Recovered/Not Resolved]
  - Dry skin [Not Recovered/Not Resolved]
  - Haemoglobin decreased [None]
  - White blood cell count increased [None]
  - Exercise tolerance decreased [Unknown]
